FAERS Safety Report 8821781 (Version 1)
Quarter: 2012Q4

REPORT INFORMATION
  Report Type: 
  Country: US (occurrence: US)
  Receive Date: 20121002
  Receipt Date: 20121002
  Transmission Date: 20130627
  Serious: Yes (Other)
  Sender: FDA-Public Use
  Company Number: US-MERCK-1210USA000532

PATIENT
  Age: 47 Year
  Sex: Female

DRUGS (1)
  1. JANUVIA [Suspect]
     Dosage: 1 tablet, qd
     Route: 048

REACTIONS (4)
  - Asthenia [Unknown]
  - Headache [Unknown]
  - Upper respiratory tract infection [Unknown]
  - Rash [Unknown]
